FAERS Safety Report 8045730-8 (Version None)
Quarter: 2012Q1

REPORT INFORMATION
  Report Type: 
  Country: None (occurrence: None)
  Receive Date: 20120113
  Receipt Date: 20120110
  Transmission Date: 20120608
  Serious: Yes (Other)
  Sender: FDA-Public Use
  Company Number: PHEH2012US001056

PATIENT
  Sex: Male

DRUGS (2)
  1. TRILEPTAL [Suspect]
     Dosage: 1 DF (300 MG), Q4H
  2. DIOVAN HCT [Suspect]
     Dosage: 1 DF, QD (320 MG VALS AND 25 MG HYDR)

REACTIONS (1)
  - NEOPLASM MALIGNANT [None]
